FAERS Safety Report 8832515 (Version 1)
Quarter: 2012Q4

REPORT INFORMATION
  Report Type: 
  Country: US (occurrence: US)
  Receive Date: 20121010
  Receipt Date: 20121010
  Transmission Date: 20130627
  Serious: No
  Sender: FDA-Public Use
  Company Number: US-009507513-1210USA002783

PATIENT

DRUGS (1)
  1. JANUMET XR [Suspect]
     Indication: TYPE 2 DIABETES MELLITUS
     Dosage: UNK
     Route: 048

REACTIONS (3)
  - Arthralgia [Unknown]
  - Tendonitis [Unknown]
  - Muscle spasms [Unknown]
